FAERS Safety Report 10064291 (Version 1)
Quarter: 2014Q2

REPORT INFORMATION
  Report Type: Spontaneous
  Country: US (occurrence: None)
  Receive Date: 20140407
  Receipt Date: 20140407
  Transmission Date: 20141212
  Serious: Yes (Disabling)
  Sender: FDA-Public Use
  Company Number: None

PATIENT
  Age: 62 Year
  Sex: Female
  Weight: 38.1 kg

DRUGS (4)
  1. OMEPRAZOLE DR [Suspect]
     Indication: GASTROOESOPHAGEAL REFLUX DISEASE
     Dosage: 1 CAPSULE ONCE A DAY BEFORE BREAKFAST BY MOUTH
     Route: 048
     Dates: start: 20130317, end: 20140325
  2. SYNYTHROID [Concomitant]
  3. VALIUM [Concomitant]
  4. CALCIUM WITH MAGNESIUM AND VITAMIN D3 [Concomitant]

REACTIONS (17)
  - Blister [None]
  - Diarrhoea [None]
  - Pyrexia [None]
  - Chills [None]
  - Abdominal pain upper [None]
  - Dizziness [None]
  - Chest pain [None]
  - Neck pain [None]
  - Musculoskeletal pain [None]
  - Cough [None]
  - Laryngitis [None]
  - Headache [None]
  - Pain [None]
  - Fatigue [None]
  - Palpitations [None]
  - Epistaxis [None]
  - Rectal haemorrhage [None]
